FAERS Safety Report 7099809-8 (Version None)
Quarter: 2010Q4

REPORT INFORMATION
  Report Type: 
  Country: None (occurrence: None)
  Receive Date: 20101112
  Receipt Date: 20091009
  Transmission Date: 20110411
  Serious: Yes (Hospitalization)
  Sender: FDA-Public Use
  Company Number: ZA-AMGEN-ZAFSP2009000019

PATIENT

DRUGS (1)
  1. NEUPOGEN [Suspect]

REACTIONS (1)
  - SEPSIS [None]
